FAERS Safety Report 6300798-1 (Version None)
Quarter: 2009Q3

REPORT INFORMATION
  Report Type: 
  Country: None (occurrence: None)
  Receive Date: 20090807
  Receipt Date: 20071128
  Transmission Date: 20100115
  Serious: Yes (Other)
  Sender: FDA-Public Use
  Company Number: US-ASTRAZENECA-2006UW23568

PATIENT
  Age: 30 Year
  Sex: Female
  Weight: 120.2 kg

DRUGS (16)
  1. SEROQUEL [Suspect]
     Indication: DEPRESSION
     Route: 048
     Dates: start: 19970101, end: 20060101
  2. SEROQUEL [Suspect]
     Indication: ANXIETY
     Route: 048
     Dates: start: 19970101, end: 20060101
  3. SEROQUEL [Suspect]
     Indication: SLEEP DISORDER
     Route: 048
     Dates: start: 19970101, end: 20060101
  4. SEROQUEL [Suspect]
     Route: 048
     Dates: start: 20011026
  5. SEROQUEL [Suspect]
     Route: 048
     Dates: start: 20011026
  6. SEROQUEL [Suspect]
     Route: 048
     Dates: start: 20011026
  7. AVALIDE [Concomitant]
     Dosage: 300/12.5 MG DAILY
     Dates: start: 20030425
  8. TOPAMAX [Concomitant]
     Dosage: STRENGTH 25MG, 50 MG DOSE 25MG-50MG DAILY
     Route: 048
     Dates: start: 20030425
  9. EFFEXOR [Concomitant]
     Route: 048
     Dates: start: 20030425
  10. CELEXA [Concomitant]
     Dates: start: 20030425
  11. NORVASC [Concomitant]
     Route: 048
     Dates: start: 20030425
  12. COUMADIN [Concomitant]
     Dosage: STRENGTH 5MG, 10MG DOSE 5MG-10MG DAILY
     Route: 048
     Dates: start: 20030425
  13. XANAX [Concomitant]
     Dosage: 0.25MG-50MG DAILY
     Route: 048
     Dates: start: 20011026
  14. SERZONE [Concomitant]
     Route: 048
     Dates: start: 20001218
  15. DIPHENHYDRAMINE HCL [Concomitant]
     Dosage: TAKE 1 CAPSULE EVERY 6 TO 8 HRS
     Route: 048
     Dates: start: 20011204
  16. FIORCET [Concomitant]
     Dates: start: 20030425

REACTIONS (5)
  - DIABETES MELLITUS [None]
  - DIABETES MELLITUS INADEQUATE CONTROL [None]
  - NEUROPATHY PERIPHERAL [None]
  - TYPE 1 DIABETES MELLITUS [None]
  - TYPE 2 DIABETES MELLITUS [None]
